FAERS Safety Report 17092682 (Version 1)
Quarter: 2019Q4

REPORT INFORMATION
  Report Type: Spontaneous
  Country: GB (occurrence: GB)
  Receive Date: 20191129
  Receipt Date: 20191129
  Transmission Date: 20200122
  Serious: Yes (Death, Hospitalization, Other)
  Sender: FDA-Public Use
  Company Number: GB-SA-2019SA329512

PATIENT
  Age: 49 Year
  Sex: Male

DRUGS (11)
  1. CHLORPHENIRAMINE [CHLORPHENAMINE] [Concomitant]
     Active Substance: CHLORPHENIRAMINE
     Indication: PREMEDICATION
  2. CAMPATH [Suspect]
     Active Substance: ALEMTUZUMAB
     Dosage: 10 MG ON DAY 2
     Route: 041
  3. CAMPATH [Suspect]
     Active Substance: ALEMTUZUMAB
     Dosage: 30 MG ON DAY 3
     Route: 041
  4. METHYLPREDNISOLONE. [Suspect]
     Active Substance: METHYLPREDNISOLONE
     Indication: RHEUMATOID ARTHRITIS
     Dosage: PULSE
     Route: 042
  5. CAMPATH [Suspect]
     Active Substance: ALEMTUZUMAB
     Dosage: 30 MG THRICE WEEKLY, 7 DOSES
     Route: 041
  6. CAMPATH [Suspect]
     Active Substance: ALEMTUZUMAB
     Indication: CHRONIC LYMPHOCYTIC LEUKAEMIA
     Dosage: 3 MG ON DAY 1
     Route: 041
     Dates: start: 1998
  7. METHOTREXATE. [Suspect]
     Active Substance: METHOTREXATE
     Indication: RHEUMATOID ARTHRITIS
     Dosage: UNK UNK, QW
     Route: 048
  8. SULFASALAZINE. [Suspect]
     Active Substance: SULFASALAZINE
     Indication: RHEUMATOID ARTHRITIS
     Route: 048
  9. PARACETAMOL [Concomitant]
     Active Substance: ACETAMINOPHEN
     Indication: PREMEDICATION
  10. CAMPATH [Suspect]
     Active Substance: ALEMTUZUMAB
     Dosage: THRICE WEEKLY FOR A TOTAL OF 22 DOSES
     Route: 058
  11. FLUDARABINE [Concomitant]
     Active Substance: FLUDARABINE PHOSPHATE
     Indication: CHRONIC LYMPHOCYTIC LEUKAEMIA
     Dosage: 25 MG/M2, QD, 5 DAY COURSE EVERY 28 DAY
     Route: 042

REACTIONS (8)
  - Immune thrombocytopenic purpura [Fatal]
  - Intra-abdominal haemorrhage [Fatal]
  - Serum sickness [Unknown]
  - Haematuria [Fatal]
  - Gastrointestinal haemorrhage [Fatal]
  - Retinal haemorrhage [Unknown]
  - Device related sepsis [Unknown]
  - Anaemia [Unknown]
